FAERS Safety Report 9535950 (Version 1)
Quarter: 2013Q2

REPORT INFORMATION
  Report Type: Spontaneous
  Country: US (occurrence: None)
  Receive Date: 20130508
  Receipt Date: 20130508
  Transmission Date: 20140414
  Serious: Yes (Life-Threatening)
  Sender: FDA-Public Use
  Company Number: LMI-2013-00159

PATIENT
  Age: 31 Year
  Sex: Male

DRUGS (14)
  1. DEFINITY (PERFLUTREN) 1 ML DEFINITY DILUTED WITH 9 ML NORMAL SALINE (2 ML), INTRAVENOUS B0LUS [Suspect]
     Indication: STRESS ECHOCARDIOGRAM
     Dosage: 1 ML DEFINITY DILUTED WITH 9 ML NORMAL SALINE (2 ML ), INTRAVENOUS BOLUS
     Route: 040
     Dates: start: 20130422, end: 20130422
  2. DEFINITY (PERFLUTREN) [Suspect]
     Indication: STRESS ECHOCARDIOGRAM
     Dosage: 1ML , DEFINITY DILUTED WITH 9 ML NORMAL SALINE (2 ML), INTRAVENOUS BOLUS?
     Route: 040
     Dates: start: 2001
  3. PREDNISONE (PREDNISONE) [Concomitant]
  4. BENADRYL (DEPHENHYDRAMINE HYDROCHLORIDE) [Concomitant]
  5. ASPRIN (ACETYLSALICYLIC ACID) [Concomitant]
  6. ENOXAPARIN (ENOXAPARIN) [Concomitant]
  7. INSULIN (INSULIN) [Concomitant]
  8. LISINOPRIL (LISINOPRIL) [Concomitant]
  9. SOLUMEDROL (MEHTYLPREDNISONE SODIUM SUCCINATE) [Concomitant]
  10. NICOTINE PATCH (NICOTINIE) [Concomitant]
  11. NITRO PASTE (GLYCERYL TRINITRATE)? [Concomitant]
  12. POTASSIUM CHLORIDE (POTASSIUM CHLORIDE) [Concomitant]
  13. METFORMIN (METFORMIN) [Concomitant]
  14. RANITIDINE (RANITIDINE) [Concomitant]

REACTIONS (1)
  - Anaphylactic reaction [None]
